FAERS Safety Report 12964197 (Version 1)
Quarter: 2016Q4

REPORT INFORMATION
  Report Type: Spontaneous
  Country: JP (occurrence: JP)
  Receive Date: 20161122
  Receipt Date: 20161122
  Transmission Date: 20170207
  Serious: Yes (Life-Threatening, Other)
  Sender: FDA-Public Use
  Company Number: JP-ELI_LILLY_AND_COMPANY-JP201611007785

PATIENT
  Age: 92 Year
  Sex: Male
  Weight: 50 kg

DRUGS (11)
  1. EDIROL [Concomitant]
     Active Substance: ELDECALCITOL
  2. CYMBALTA [Suspect]
     Active Substance: DULOXETINE HYDROCHLORIDE
     Dosage: 40 MG, QD
     Route: 048
     Dates: start: 201607, end: 201610
  3. CELECOX [Concomitant]
     Active Substance: CELECOXIB
  4. CYMBALTA [Suspect]
     Active Substance: DULOXETINE HYDROCHLORIDE
     Dosage: 40 MG, QD
     Route: 048
     Dates: start: 201603
  5. ZOPICLONE [Concomitant]
     Active Substance: ZOPICLONE
  6. LANSOPRAZOLE. [Concomitant]
     Active Substance: LANSOPRAZOLE
  7. CYMBALTA [Suspect]
     Active Substance: DULOXETINE HYDROCHLORIDE
     Indication: BACK PAIN
     Dosage: 20 MG, QD
     Route: 048
     Dates: start: 201602
  8. ZYPREXA [Concomitant]
     Active Substance: OLANZAPINE
  9. CYMBALTA [Suspect]
     Active Substance: DULOXETINE HYDROCHLORIDE
     Dosage: 60 MG, QD
     Route: 048
     Dates: start: 201604
  10. MEXILETINE [Concomitant]
     Active Substance: MEXILETINE
  11. PREDNISOLONE. [Suspect]
     Active Substance: PREDNISOLONE
     Indication: PRODUCT USED FOR UNKNOWN INDICATION
     Route: 065

REACTIONS (3)
  - Somatic delusion [Recovering/Resolving]
  - Intentional self-injury [Unknown]
  - Mania [Recovered/Resolved]

NARRATIVE: CASE EVENT DATE: 201606
